FAERS Safety Report 18214412 (Version 1)
Quarter: 2020Q3

REPORT INFORMATION
  Report Type: Spontaneous
  Country: JP (occurrence: JP)
  Receive Date: 20200831
  Receipt Date: 20200831
  Transmission Date: 20201103
  Serious: Yes (Death, Other)
  Sender: FDA-Public Use
  Company Number: JP-CELGENEUS-JPN-20200701708

PATIENT
  Age: 72 Year
  Sex: Male

DRUGS (1)
  1. ISTODAX [Suspect]
     Active Substance: ROMIDEPSIN
     Indication: PERIPHERAL T-CELL LYMPHOMA UNSPECIFIED
     Dosage: UNKNOWN
     Route: 041
     Dates: start: 20200708, end: 20200720

REACTIONS (4)
  - Respiratory failure [Fatal]
  - Peripheral T-cell lymphoma unspecified stage IV [Fatal]
  - Platelet count decreased [Recovered/Resolved]
  - Lung infiltration [Fatal]

NARRATIVE: CASE EVENT DATE: 20200708
